FAERS Safety Report 24280378 (Version 1)
Quarter: 2024Q3

REPORT INFORMATION
  Report Type: Spontaneous
  Country: US (occurrence: US)
  Receive Date: 20240904
  Receipt Date: 20240904
  Transmission Date: 20241017
  Serious: Yes (Other)
  Sender: ALCON
  Company Number: US-ALCON LABORATORIES-ALC2024US004015

PATIENT
  Age: 58 Year
  Sex: Female

DRUGS (1)
  1. SYSTANE COMPLETE PF [Suspect]
     Active Substance: PROPYLENE GLYCOL
     Indication: Product used for unknown indication
     Dosage: ONE DROP IN EACH EYE TWICE DAILY
     Route: 047

REACTIONS (2)
  - Product contamination microbial [Unknown]
  - Ocular hyperaemia [Recovered/Resolved]
